FAERS Safety Report 23542666 (Version 1)
Quarter: 2024Q1

REPORT INFORMATION
  Report Type: Spontaneous
  Country: IL (occurrence: IL)
  Receive Date: 20240220
  Receipt Date: 20240220
  Transmission Date: 20240409
  Serious: Yes (Other)
  Sender: FDA-Public Use
  Company Number: IL-ALKEM LABORATORIES LIMITED-IL-ALKEM-2023-00185

PATIENT
  Age: 17 Year
  Sex: Male

DRUGS (1)
  1. TRIAMCINOLONE ACETONIDE [Suspect]
     Active Substance: TRIAMCINOLONE ACETONIDE
     Indication: Keloid scar
     Dosage: 40 MILLIGRAM, (TWO WEEKLY DOSES OF 40 MG OF TRIAMCINOLONE INJECTED INTO EACH OF TWO KELOIDS) 40 MG T
     Route: 026

REACTIONS (1)
  - Cushing^s syndrome [Recovering/Resolving]
